FAERS Safety Report 8819269 (Version 7)
Quarter: 2013Q2

REPORT INFORMATION
  Report Type: Report from Study
  Country: US (occurrence: US)
  Receive Date: 20121001
  Receipt Date: 20130405
  Transmission Date: 20140414
  Serious: Yes (Other)
  Sender: FDA-Public Use
  Company Number: US-GENZYME-LEUK-1000265

PATIENT
  Age: 41 Year
  Sex: Female
  Weight: 63 kg

DRUGS (14)
  1. LEUKINE [Suspect]
     Indication: MALIGNANT MELANOMA
     Dosage: 250 MCG, QD DAYS 1-14 OF 21 DAY CYCLE
     Route: 058
     Dates: start: 20110310, end: 20110318
  2. LEUKINE [Suspect]
     Dosage: 125 MCG, QD
     Route: 058
     Dates: start: 20110331, end: 20110402
  3. IPILIMUMAB [Suspect]
     Indication: MALIGNANT MELANOMA
     Dosage: 10 MG/KG, QD, OVER 90 MINS ON DAY 1
     Route: 042
     Dates: start: 20110310, end: 20110310
  4. IPILIMUMAB [Suspect]
     Dosage: 10 MG/KG, QD
     Route: 042
     Dates: start: 20110331, end: 20110331
  5. IPILIMUMAB [Suspect]
     Dosage: 10 MG/KG, QD
     Route: 042
     Dates: start: 20110421, end: 20110421
  6. IPILIMUMAB [Suspect]
     Dosage: 10 MG/KG, QD
     Route: 042
     Dates: start: 20120512, end: 20120512
  7. IPILIMUMAB [Suspect]
     Dosage: 10 MG/KG, OVER 90 MINS ON DAY 1 Q 12 WEEKS
     Route: 042
     Dates: end: 20120809
  8. IPILIMUMAB [Suspect]
     Dosage: 10 MG/KG, OVER 90 MINS (CYCLE 25)
     Route: 042
     Dates: start: 20120830, end: 20120919
  9. PREDNISONE [Suspect]
     Indication: PRODUCT USED FOR UNKNOWN INDICATION
     Dosage: 20 MG, TID
     Route: 065
     Dates: start: 20120913, end: 20120919
  10. PREDNISONE [Suspect]
     Dosage: 20 MG, BID
     Route: 065
     Dates: start: 20120919, end: 20120924
  11. PREDNISONE [Suspect]
     Dosage: 20 MG, QD
     Route: 065
     Dates: start: 20120924
  12. PREDNISONE [Suspect]
     Dosage: 10 MG, QD
     Route: 065
     Dates: start: 20121001, end: 20121101
  13. ANTIHISTAMINES [Concomitant]
     Indication: PRODUCT USED FOR UNKNOWN INDICATION
     Dosage: UNK
     Route: 065
  14. ANTIINFLAMMATORY [Concomitant]
     Indication: PRODUCT USED FOR UNKNOWN INDICATION
     Dosage: UNK
     Route: 065

REACTIONS (24)
  - Cholelithiasis [Unknown]
  - Fatigue [Unknown]
  - Non-cardiac chest pain [Recovered/Resolved]
  - Arthralgia [Recovered/Resolved]
  - Injection site reaction [Recovered/Resolved]
  - Injection site reaction [Recovered/Resolved]
  - Rash pruritic [Recovered/Resolved]
  - Nausea [Unknown]
  - Decreased appetite [Unknown]
  - Asthenia [Unknown]
  - Blood lactate dehydrogenase increased [Unknown]
  - Aspartate aminotransferase increased [Not Recovered/Not Resolved]
  - Alanine aminotransferase increased [Not Recovered/Not Resolved]
  - Swelling [Unknown]
  - Muscular weakness [Unknown]
  - Acne [Unknown]
  - Abdominal distension [Unknown]
  - Constipation [Unknown]
  - Blood albumin decreased [Unknown]
  - Aspartate aminotransferase increased [Not Recovered/Not Resolved]
  - Aspartate aminotransferase increased [Not Recovered/Not Resolved]
  - Alanine aminotransferase increased [Not Recovered/Not Resolved]
  - Blood bilirubin increased [Not Recovered/Not Resolved]
  - Abdominal pain upper [Recovered/Resolved]
